FAERS Safety Report 9258202 (Version 1)
Quarter: 2013Q2

REPORT INFORMATION
  Report Type: Spontaneous
  Country: GR (occurrence: GR)
  Receive Date: 20130426
  Receipt Date: 20130426
  Transmission Date: 20140414
  Serious: Yes (Hospitalization, Other)
  Sender: FDA-Public Use
  Company Number: GR-ROXANE LABORATORIES, INC.-2013-RO-00538RO

PATIENT
  Age: 42 Year
  Sex: Female

DRUGS (1)
  1. LITHIUM CARBONATE [Suspect]
     Indication: BIPOLAR I DISORDER
     Dosage: 660 MG

REACTIONS (4)
  - Cystitis glandularis [Unknown]
  - Toxicity to various agents [Recovered/Resolved]
  - Hydronephrosis [Recovered/Resolved]
  - Renal impairment [Unknown]
